FAERS Safety Report 5282848-7 (Version None)
Quarter: 2007Q2

REPORT INFORMATION
  Report Type: 
  Country: None (occurrence: None)
  Receive Date: 20070402
  Receipt Date: 20070322
  Transmission Date: 20071010
  Serious: No
  Sender: FDA-Public Use
  Company Number: BE-BAXTER-2007BH003113

PATIENT
  Age: 51 Year
  Sex: Female
  Weight: 67 kg

DRUGS (10)
  1. EXTRANEAL [Suspect]
     Indication: PERITONEAL DIALYSIS
     Route: 033
     Dates: start: 20061113, end: 20070305
  2. EXTRANEAL [Suspect]
     Route: 033
     Dates: start: 20061113, end: 20070305
  3. EXTRANEAL [Suspect]
     Route: 033
     Dates: start: 20070306
  4. PHYSIONEAL, UNSPECIFIED PRODUCT [Concomitant]
     Dates: start: 20070306
  5. FUROSEMIDE [Concomitant]
  6. CALCIUM CARBONATE [Concomitant]
  7. ARANESP [Concomitant]
  8. ADCURE [Concomitant]
  9. FORLAX [Concomitant]
  10. INSULIN LENTUS HUMOLOG [Concomitant]

REACTIONS (4)
  - CATHETER RELATED COMPLICATION [None]
  - PERITONITIS BACTERIAL [None]
  - PROCEDURAL COMPLICATION [None]
  - STAPHYLOCOCCAL INFECTION [None]
